FAERS Safety Report 15734159 (Version 1)
Quarter: 2018Q4

REPORT INFORMATION
  Report Type: Spontaneous
  Country: US (occurrence: US)
  Receive Date: 20181218
  Receipt Date: 20181218
  Transmission Date: 20190205
  Serious: Yes (Other)
  Sender: FDA-Public Use
  Company Number: US-AMGEN-USASP2018179293

PATIENT
  Age: 56 Year
  Sex: Female

DRUGS (1)
  1. AIMOVIG [Suspect]
     Active Substance: ERENUMAB-AOOE
     Indication: MIGRAINE
     Dosage: 140 MG, QMO
     Route: 065
     Dates: start: 20181106, end: 20181106

REACTIONS (12)
  - Confusional state [Recovering/Resolving]
  - Dysarthria [Recovering/Resolving]
  - Head discomfort [Recovering/Resolving]
  - Paranoia [Recovering/Resolving]
  - Chest pain [Recovered/Resolved]
  - Dizziness [Recovering/Resolving]
  - Nausea [Recovering/Resolving]
  - Drug ineffective [Unknown]
  - Visual impairment [Recovering/Resolving]
  - Pain of skin [Recovering/Resolving]
  - Crying [Recovering/Resolving]
  - Constipation [Recovering/Resolving]

NARRATIVE: CASE EVENT DATE: 2018
